FAERS Safety Report 6462712-8 (Version None)
Quarter: 2009Q4

REPORT INFORMATION
  Report Type: 
  Country: None (occurrence: None)
  Receive Date: 20091130
  Receipt Date: 20091123
  Transmission Date: 20100525
  Serious: Yes (Death)
  Sender: FDA-Public Use
  Company Number: US-GILEAD-2009-0025618

PATIENT
  Sex: Female

DRUGS (18)
  1. LETAIRIS [Suspect]
     Indication: PULMONARY ARTERIAL HYPERTENSION
     Route: 048
     Dates: start: 20091022
  2. PHOSPHA [Concomitant]
  3. OYSTER SHELL TAB PLUS D [Concomitant]
  4. ASPIRIN [Concomitant]
  5. POTASSIUM CHLORIDE [Concomitant]
  6. PREDNISONE [Concomitant]
  7. SKELAXIN [Concomitant]
  8. OXYCODONE HCL [Concomitant]
  9. METOPROLOL [Concomitant]
  10. ADVAIR DISKUS 100/50 [Concomitant]
  11. ALBUTEROL [Concomitant]
  12. PAROXETINE HCL [Concomitant]
  13. NORTRIPTYLINE HYDROCHLORIDE [Concomitant]
  14. LANTUS [Concomitant]
  15. LACTULOSE [Concomitant]
  16. DETROL LA [Concomitant]
  17. PANTOPRAZOLE [Concomitant]
  18. CUPRIMINE [Concomitant]

REACTIONS (1)
  - DEATH [None]
